FAERS Safety Report 9265865 (Version 1)
Quarter: 2013Q2

REPORT INFORMATION
  Report Type: Spontaneous
  Country: US (occurrence: US)
  Receive Date: 20130501
  Receipt Date: 20130501
  Transmission Date: 20140414
  Serious: Yes (Hospitalization, Other)
  Sender: FDA-Public Use
  Company Number: US-PFIZER INC-2013135051

PATIENT
  Age: 49 Year
  Sex: Female
  Weight: 86.17 kg

DRUGS (14)
  1. LYRICA [Suspect]
     Indication: FIBROMYALGIA
     Dosage: 50 MG, 3X/DAY
     Route: 048
     Dates: start: 201209, end: 201304
  2. LYRICA [Suspect]
     Indication: MIGRAINE
  3. CLONAZEPAM [Concomitant]
     Dosage: 0.5 MG, 2X/DAY
     Route: 048
  4. DOCUSATE SODIUM\SENNOSIDES [Concomitant]
     Dosage: 50/8.6 MG, 2X/DAY
     Route: 048
  5. OMEPRAZOLE [Concomitant]
     Dosage: 40 MG, 1X/DAY
     Route: 048
  6. TRAZODONE [Concomitant]
     Dosage: 50 MG, 1X/DAY
  7. SIMVASTATIN [Concomitant]
     Dosage: 40 MG, 1X/DAY
  8. OXYBUTYNIN ER [Concomitant]
     Dosage: 10 MG, 1X/DAY
  9. PROPRANOLOL [Concomitant]
     Dosage: 40 MG, 2X/DAY
     Route: 048
  10. TIZANIDINE [Concomitant]
     Dosage: 40 MG, UNK
  11. SEROQUEL [Concomitant]
     Dosage: 400 MG, 1X/DAY
  12. CHANTIX [Concomitant]
     Dosage: UNK, 2X/DAY
  13. PERCOCET [Concomitant]
     Dosage: UNK, AS NEEDED
  14. COMBIVENT [Concomitant]
     Dosage: UNK, 3X/DAY

REACTIONS (3)
  - Off label use [Unknown]
  - Hypertensive crisis [Not Recovered/Not Resolved]
  - Drug ineffective for unapproved indication [Not Recovered/Not Resolved]
